FAERS Safety Report 22217468 (Version 1)
Quarter: 2023Q2

REPORT INFORMATION
  Report Type: Spontaneous
  Country: IT (occurrence: IT)
  Receive Date: 20230417
  Receipt Date: 20230417
  Transmission Date: 20230722
  Serious: Yes (Other)
  Sender: FDA-Public Use
  Company Number: IT-ALKEM LABORATORIES LIMITED-IN-ALKEM-2023-01612

PATIENT
  Age: 21 Year
  Sex: Male

DRUGS (6)
  1. ARIPIPRAZOLE [Suspect]
     Active Substance: ARIPIPRAZOLE
     Indication: Schizophrenia
     Dosage: UNK
     Route: 048
  2. ARIPIPRAZOLE [Suspect]
     Active Substance: ARIPIPRAZOLE
     Dosage: 200 MILLIGRAM, ONCE MONTHLY (LONG ACTING INJECTABLE ANTI PSYCHOTICS)
     Route: 065
  3. ARIPIPRAZOLE [Suspect]
     Active Substance: ARIPIPRAZOLE
     Dosage: 400 MILLIGRAM, ONCE MONTHLY (LONG ACTING INJECTABLE ANTI PSYCHOTICS)
     Route: 065
  4. CLOZAPINE [Suspect]
     Active Substance: CLOZAPINE
     Indication: Schizophrenia
     Dosage: UNK (LONG-ACTING ANTIPSYCHOTIC INJECTION)
     Route: 065
  5. CLOZAPINE [Suspect]
     Active Substance: CLOZAPINE
     Dosage: 300 MG/DAY (SLOWLY TITRATED)
     Route: 065
  6. CLOZAPINE [Suspect]
     Active Substance: CLOZAPINE
     Dosage: 150 MILLIGRAM (REDUCED DOSE)
     Route: 065

REACTIONS (3)
  - Drug ineffective [Unknown]
  - Myoclonus [Unknown]
  - Sedation complication [Unknown]
